FAERS Safety Report 16728688 (Version 1)
Quarter: 2019Q3

REPORT INFORMATION
  Report Type: Spontaneous
  Country: AU (occurrence: AU)
  Receive Date: 20190822
  Receipt Date: 20190822
  Transmission Date: 20191005
  Serious: Yes (Hospitalization)
  Sender: FDA-Public Use
  Company Number: AU-CELGENEUS-AUS-20190805168

PATIENT
  Age: 66 Year
  Sex: Male
  Weight: 96.5 kg

DRUGS (41)
  1. ALLOPURINOL. [Concomitant]
     Active Substance: ALLOPURINOL
     Indication: PROPHYLAXIS
     Dosage: 300 MILLIGRAM
     Route: 048
     Dates: start: 20190102
  2. PREDNISONE. [Concomitant]
     Active Substance: PREDNISONE
     Indication: PAIN IN EXTREMITY
     Dosage: 7.5 MILLIGRAM
     Route: 048
     Dates: start: 20190409
  3. FRUSEMIDE [Concomitant]
     Active Substance: FUROSEMIDE
     Indication: OEDEMA PERIPHERAL
     Dosage: 40 MILLIGRAM
     Route: 048
     Dates: start: 20190517
  4. PRACINOSTAT [Concomitant]
     Active Substance: PRACINOSTAT
     Indication: ACUTE MYELOID LEUKAEMIA
     Dosage: 60 MILLIGRAM
     Route: 048
     Dates: start: 20190114, end: 20190805
  5. PARACETAMOL [Concomitant]
     Active Substance: ACETAMINOPHEN
     Indication: OSTEOARTHRITIS
     Dosage: 3000 MILLIGRAM
     Route: 048
  6. ISOPHANE INSULIN [Concomitant]
     Active Substance: INSULIN NOS
     Indication: DIABETES MELLITUS
     Dosage: 100 IU (INTERNATIONAL UNIT)
     Route: 058
     Dates: start: 2018
  7. ABSTRAL [Concomitant]
     Active Substance: FENTANYL CITRATE
     Indication: OSTEOARTHRITIS
  8. PREDNISOLONE. [Concomitant]
     Active Substance: PREDNISOLONE
     Indication: OSTEOARTHRITIS
     Route: 048
     Dates: start: 20190409
  9. FRUSEMIDE [Concomitant]
     Active Substance: FUROSEMIDE
     Indication: FLUID OVERLOAD
  10. AUGMENTIN DUO FORTE [Concomitant]
     Active Substance: AMOXICILLIN\CLAVULANATE POTASSIUM
     Indication: PYREXIA
     Dosage: 875/125 MILLIGRAM
     Route: 065
     Dates: start: 20190505
  11. MACROGOL [Concomitant]
     Active Substance: POLYETHYLENE GLYCOLS
     Indication: CONSTIPATION
     Route: 048
     Dates: start: 20190102
  12. CALCIFEROL [Concomitant]
     Indication: SUPPLEMENTATION THERAPY
     Dosage: 25 MICROGRAM
     Route: 048
  13. OXYCODONE [Concomitant]
     Active Substance: OXYCODONE
     Indication: OSTEOARTHRITIS
     Dosage: 120 MILLIGRAM
     Route: 048
     Dates: start: 2018
  14. COLCHICINE. [Concomitant]
     Active Substance: COLCHICINE
     Indication: CHONDROCALCINOSIS PYROPHOSPHATE
     Dosage: 1000 MICROGRAM
     Route: 065
     Dates: start: 20190801
  15. HYDROMORPHONE [Concomitant]
     Active Substance: HYDROMORPHONE
     Indication: PRODUCT USED FOR UNKNOWN INDICATION
     Dosage: 48 MILLIGRAM
     Route: 048
     Dates: start: 20190801
  16. PIPERACILLIN AND TAZOBACTAM [Concomitant]
     Active Substance: PIPERACILLIN SODIUM\TAZOBACTAM SODIUM
     Indication: URINARY TRACT DISORDER
     Dosage: 4.5 GRAM
     Route: 041
     Dates: start: 20190605
  17. DIAZEPAM. [Concomitant]
     Active Substance: DIAZEPAM
     Indication: ANXIETY
     Route: 048
     Dates: start: 20190503
  18. PREDNISONE. [Concomitant]
     Active Substance: PREDNISONE
     Indication: OSTEOARTHRITIS
     Dosage: 20 MILLIGRAM
     Route: 048
     Dates: start: 20190622
  19. PREDNISONE. [Concomitant]
     Active Substance: PREDNISONE
     Dosage: 6.5 MILLIGRAM
     Route: 048
     Dates: start: 20190802
  20. SALBUTAMOL [Concomitant]
     Active Substance: ALBUTEROL
     Indication: ASTHMA
     Route: 055
  21. PANTOPRAZOLE [Concomitant]
     Active Substance: PANTOPRAZOLE
     Indication: GASTRIC ANTRAL VASCULAR ECTASIA
     Dosage: 40 MILLIGRAM
     Route: 065
  22. PREDNISONE. [Concomitant]
     Active Substance: PREDNISONE
     Dosage: 9 MILLIGRAM
     Route: 048
     Dates: start: 20190730, end: 20190801
  23. INSULIN [Concomitant]
     Active Substance: INSULIN NOS
     Indication: DIABETES MELLITUS
     Dosage: 26 IU (INTERNATIONAL UNIT)
     Route: 058
     Dates: start: 20190417
  24. OXYCODONE [Concomitant]
     Active Substance: OXYCODONE
     Indication: PAIN IN EXTREMITY
     Dosage: 5-10 MG
     Route: 048
     Dates: start: 20190412
  25. FLUTICASONE-FORMOTEROL [Concomitant]
     Indication: ASTHMA
     Dosage: 250/10 MICROGRAM
     Route: 055
  26. TIOTROPIUM [Concomitant]
     Active Substance: TIOTROPIUM
     Indication: ASTHMA
     Dosage: 5 MICROGRAM
     Route: 055
  27. PREDNISONE. [Concomitant]
     Active Substance: PREDNISONE
     Indication: CHONDROCALCINOSIS PYROPHOSPHATE
     Dosage: 10 MILLIGRAM
     Route: 048
     Dates: start: 20190716, end: 20190729
  28. TRIMETHROPRIM [Concomitant]
     Indication: URINARY TRACT DISORDER
     Dosage: 160-800 MILLIGRAM
     Route: 048
     Dates: start: 20190415
  29. TRIMETHOPRIM/SULFAMETHOXAZOLE [Concomitant]
     Active Substance: SULFAMETHOXAZOLE\TRIMETHOPRIM
     Indication: ANTIBIOTIC PROPHYLAXIS
     Dosage: 160/800 MG
     Route: 048
     Dates: start: 20190104
  30. GABAPENTIN. [Concomitant]
     Active Substance: GABAPENTIN
     Indication: LUMBAR SPINAL STENOSIS
     Dosage: 600 MILLIGRAM
     Route: 048
     Dates: start: 2018
  31. DULOXETINE. [Concomitant]
     Active Substance: DULOXETINE
     Indication: ANXIETY
     Dosage: 30 MILLIGRAM
     Route: 048
  32. OXYCODONE [Concomitant]
     Active Substance: OXYCODONE
     Dosage: 80 MILLIGRAM
     Route: 048
     Dates: start: 20190514, end: 20190801
  33. LORATIDINE [Concomitant]
     Active Substance: LORATADINE
     Indication: RASH PRURITIC
     Route: 048
     Dates: start: 20190516
  34. FENTANYL. [Concomitant]
     Active Substance: FENTANYL
     Indication: PAIN IN EXTREMITY
     Route: 060
     Dates: start: 20190413
  35. TEMAZEPAM. [Concomitant]
     Active Substance: TEMAZEPAM
     Indication: INSOMNIA
     Route: 048
     Dates: start: 20190105
  36. SPAN K [Concomitant]
     Indication: HYPOKALAEMIA
     Dosage: 1200 MILLIGRAM
     Route: 065
     Dates: start: 20190503
  37. HOME OXYGEN [Concomitant]
     Indication: DYSPNOEA
     Route: 045
     Dates: start: 201904
  38. AZACITIDINE. [Suspect]
     Active Substance: AZACITIDINE
     Indication: ACUTE MYELOID LEUKAEMIA
     Dosage: 75 MILLIGRAM/SQ. METER
     Route: 058
     Dates: start: 20190114, end: 20190806
  39. ABSTRAL [Concomitant]
     Active Substance: FENTANYL CITRATE
     Indication: CHONDROCALCINOSIS PYROPHOSPHATE
     Dosage: 1200 MICROGRAM
     Route: 060
     Dates: start: 20190117
  40. PREDNISOLONE. [Concomitant]
     Active Substance: PREDNISOLONE
     Indication: CHONDROCALCINOSIS PYROPHOSPHATE
  41. OXYMETAZOLINE [Concomitant]
     Active Substance: OXYMETAZOLINE
     Indication: NASAL CONGESTION
     Route: 045
     Dates: start: 2017

REACTIONS (1)
  - Ventricular tachycardia [Recovered/Resolved]

NARRATIVE: CASE EVENT DATE: 20190806
